FAERS Safety Report 23822014 (Version 3)
Quarter: 2024Q3

REPORT INFORMATION
  Report Type: Spontaneous
  Country: US (occurrence: US)
  Receive Date: 20240506
  Receipt Date: 20240701
  Transmission Date: 20241016
  Serious: Yes (Other)
  Sender: STEMLINE THERAPEUTICS
  Company Number: US-Stemline Therapeutics, Inc.-2024ST002239

PATIENT
  Age: 57 Year
  Sex: Female

DRUGS (1)
  1. ORSERDU [Suspect]
     Active Substance: ELACESTRANT
     Indication: Product used for unknown indication
     Route: 048
     Dates: start: 20240315

REACTIONS (8)
  - Hip fracture [Unknown]
  - Metastases to bone [Not Recovered/Not Resolved]
  - Back injury [Unknown]
  - Functional gastrointestinal disorder [Unknown]
  - Pain [Unknown]
  - Thirst [Unknown]
  - Irritable bowel syndrome [Unknown]
  - Nausea [Recovering/Resolving]
